FAERS Safety Report 6045219-1 (Version None)
Quarter: 2009Q1

REPORT INFORMATION
  Report Type: 
  Country: None (occurrence: None)
  Receive Date: 20090121
  Receipt Date: 20090109
  Transmission Date: 20090719
  Serious: Yes (Other)
  Sender: FDA-Public Use
  Company Number: JP-ROCHE-603830

PATIENT
  Sex: Male

DRUGS (2)
  1. TAMIFLU [Suspect]
     Indication: INFLUENZA
     Dosage: DRUG NAME: TAMIFLU CAPSULE.
     Route: 048
     Dates: start: 20081208, end: 20081208
  2. HOKUNALIN [Concomitant]
     Dosage: DRUG REPORTED: HOKUNALIN (TULOBUTEROL HYDROCHLORIDE)
     Route: 048
     Dates: start: 20081208, end: 20081211

REACTIONS (1)
  - ABNORMAL BEHAVIOUR [None]
